FAERS Safety Report 10308102 (Version 2)
Quarter: 2014Q3

REPORT INFORMATION
  Report Type: Spontaneous
  Country: US (occurrence: US)
  Receive Date: 20140716
  Receipt Date: 20140716
  Transmission Date: 20150326
  Serious: Yes (Hospitalization, Other)
  Sender: FDA-Public Use
  Company Number: US-009507513-2010SP004556

PATIENT
  Sex: Female
  Weight: 77.11 kg

DRUGS (1)
  1. NUVARING [Suspect]
     Active Substance: ETHINYL ESTRADIOL\ETONOGESTREL
     Indication: HYPOMENORRHOEA
     Dates: start: 2006, end: 2008

REACTIONS (26)
  - Amnesia [Unknown]
  - Scoliosis [Unknown]
  - Back pain [Unknown]
  - Intracranial venous sinus thrombosis [Recovering/Resolving]
  - Off label use [Unknown]
  - Anxiety [Unknown]
  - Insomnia [Unknown]
  - Costochondritis [Unknown]
  - Ear pain [Unknown]
  - Major depression [Unknown]
  - Visual impairment [Unknown]
  - Cerebrovascular disorder [Unknown]
  - Blood triglycerides increased [Unknown]
  - Deep vein thrombosis [Unknown]
  - Cerebrovascular accident [Unknown]
  - Thyroid disorder [Unknown]
  - Pneumonia [Unknown]
  - Ovarian cyst [Unknown]
  - Agoraphobia [Unknown]
  - Palpitations [Unknown]
  - Panic disorder [Unknown]
  - Aneurysm [Unknown]
  - Migraine [Unknown]
  - Blood disorder [Unknown]
  - Headache [Unknown]
  - Photophobia [Not Recovered/Not Resolved]

NARRATIVE: CASE EVENT DATE: 2006
